FAERS Safety Report 9624447 (Version 3)
Quarter: 2013Q4

REPORT INFORMATION
  Report Type: Report from Study
  Country: HU (occurrence: HU)
  Receive Date: 20131015
  Receipt Date: 20131016
  Transmission Date: 20140711
  Serious: Yes (Death, Hospitalization)
  Sender: FDA-Public Use
  Company Number: PHHO2013HU012948

PATIENT
  Sex: 0

DRUGS (17)
  1. AFINITOR [Suspect]
     Indication: BREAST CANCER METASTATIC
     Dosage: 10 MG, QD
     Route: 048
     Dates: start: 20130716, end: 20130918
  2. AFINITOR [Suspect]
     Dosage: UNK
  3. EXEMESTANE [Suspect]
     Indication: BREAST CANCER METASTATIC
     Dosage: 25 MG, QD
     Route: 048
     Dates: start: 20130716, end: 20131003
  4. PREDUCTAL MV [Concomitant]
     Indication: HYPERTENSION
     Dosage: 35 MG, QD
     Route: 048
  5. NITRO-DUR [Concomitant]
     Indication: HYPERTENSION
     Dosage: 0.2 MG, QH
     Route: 062
  6. DIAPHYLLIN [Concomitant]
     Indication: CHRONIC OBSTRUCTIVE PULMONARY DISEASE
     Dosage: 150 MG, QD
     Route: 048
  7. MILURIT [Concomitant]
     Indication: HYPERURICAEMIA
     Dosage: 100 MG, QD
     Route: 048
  8. THIOGAMMA [Concomitant]
     Indication: DIABETES PROPHYLAXIS
     Dosage: 600 MG, QD
     Route: 048
  9. NORVASC [Concomitant]
     Indication: HYPERTENSION
     Dosage: 5 MG, QD
     Route: 048
  10. MOXONIDIN RATIOPHARM [Concomitant]
     Indication: HYPERTENSION
     Dosage: 0.3 MG, QD
     Route: 048
  11. DIGOXIN [Concomitant]
     Indication: HYPERTENSION
     Dosage: 250 UG, 5QD
     Route: 048
  12. AMILORID [Concomitant]
     Indication: HYPERTENSION
     Dosage: 5015 MG, QW
     Route: 048
  13. DICLAC [Concomitant]
     Indication: SPINAL OSTEOARTHRITIS
     Dosage: 75 MG, THREE TIMES
     Route: 048
     Dates: start: 20130628
  14. VENTOLINE EVOHALER [Concomitant]
     Indication: CHRONIC OBSTRUCTIVE PULMONARY DISEASE
     Dosage: ONE PUFF/INHALATION/ON DEMAND
  15. MATRIFEN [Concomitant]
     Indication: PAIN
     Dosage: 75 UG, QH
     Route: 062
     Dates: start: 20130712
  16. INSUMAN RAPID [Concomitant]
     Indication: DIABETES MELLITUS
     Dosage: M:40 NE, L:40 NE, E: 46 NE
  17. INSUMAN BASAL [Concomitant]
     Indication: DIABETES MELLITUS
     Dosage: E:44 NE, M:22 NE

REACTIONS (4)
  - Fatigue [Not Recovered/Not Resolved]
  - Acute respiratory failure [Fatal]
  - Breast cancer metastatic [Fatal]
  - Malignant neoplasm progression [Fatal]
